FAERS Safety Report 7487350-X (Version None)
Quarter: 2011Q2

REPORT INFORMATION
  Report Type: 
  Country: None (occurrence: None)
  Receive Date: 20110518
  Receipt Date: 20110510
  Transmission Date: 20111010
  Serious: Yes (Other)
  Sender: FDA-Public Use
  Company Number: JP-ASTELLAS-2011JP002633

PATIENT
  Sex: Female
  Weight: 45 kg

DRUGS (3)
  1. VESICARE [Suspect]
     Dosage: UNK
     Route: 048
  2. WARFARIN SODIUM [Concomitant]
     Indication: ATRIAL FIBRILLATION
     Dosage: 4.5 MG, UID/QD
     Route: 048
     Dates: start: 20071201, end: 20110413
  3. VESICARE [Suspect]
     Indication: HYPERTONIC BLADDER
     Dosage: 5 MG, UID/QD
     Route: 048
     Dates: start: 20110202, end: 20110411

REACTIONS (2)
  - ATRIAL FIBRILLATION [None]
  - DRY MOUTH [None]
